FAERS Safety Report 17592958 (Version 3)
Quarter: 2020Q3

REPORT INFORMATION
  Report Type: Spontaneous
  Country: US (occurrence: US)
  Receive Date: 20200327
  Receipt Date: 20200908
  Transmission Date: 20201102
  Serious: Yes (Other)
  Sender: FDA-Public Use
  Company Number: US-BAUSCH-BL-2020-008360

PATIENT
  Age: 72 Year
  Sex: Female

DRUGS (4)
  1. PEPCID [Concomitant]
     Active Substance: FAMOTIDINE
     Indication: GASTROOESOPHAGEAL REFLUX DISEASE
     Dosage: AS NEEDED
  2. XANAX [Concomitant]
     Active Substance: ALPRAZOLAM
     Indication: PRODUCT USED FOR UNKNOWN INDICATION
     Dosage: AT NIGHT AS NEEDED
  3. OCEAN SALINE NASAL SPRAY [Suspect]
     Active Substance: SODIUM CHLORIDE
     Indication: SINUS DISORDER
     Dosage: HAD BEEN USING FOR YEARS
     Route: 045
  4. OCEAN SALINE NASAL SPRAY [Suspect]
     Active Substance: SODIUM CHLORIDE
     Indication: CERUMEN REMOVAL
     Route: 001
     Dates: start: 201801

REACTIONS (10)
  - Deafness transitory [Recovered/Resolved]
  - Incorrect route of product administration [Unknown]
  - Deafness neurosensory [Not Recovered/Not Resolved]
  - Deafness unilateral [Not Recovered/Not Resolved]
  - Recalled product administered [Unknown]
  - Ear injury [Unknown]
  - Tinnitus [Not Recovered/Not Resolved]
  - Rhinorrhoea [Unknown]
  - Product prescribing error [Unknown]
  - Ear infection [Unknown]

NARRATIVE: CASE EVENT DATE: 201801
